FAERS Safety Report 21734937 (Version 3)
Quarter: 2022Q4

REPORT INFORMATION
  Report Type: Spontaneous
  Country: BE (occurrence: BE)
  Receive Date: 20221215
  Receipt Date: 20221226
  Transmission Date: 20230113
  Serious: Yes (Life-Threatening, Other)
  Sender: FDA-Public Use
  Company Number: None

PATIENT
  Age: 18 Year
  Sex: Female
  Weight: 60.7 kg

DRUGS (15)
  1. CRESEMBA [Suspect]
     Active Substance: ISAVUCONAZONIUM SULFATE
     Indication: Bronchopulmonary aspergillosis
     Dosage: 400 MG (200 MG,2 IN 1 D)
     Route: 042
     Dates: start: 20210606, end: 20210607
  2. CRESEMBA [Suspect]
     Active Substance: ISAVUCONAZONIUM SULFATE
     Dosage: 200 MG (200 MG,1 IN 1 D)
     Route: 042
     Dates: start: 20210608, end: 20210610
  3. MEROPENEM [Suspect]
     Active Substance: MEROPENEM
     Dosage: UNK
  4. CANCIDAS [Suspect]
     Active Substance: CASPOFUNGIN ACETATE
     Dosage: UNK
  5. ALIZAPRIDE HYDROCHLORIDE [Suspect]
     Active Substance: ALIZAPRIDE HYDROCHLORIDE
     Dosage: UNK
  6. VANCOMYCIN [Suspect]
     Active Substance: VANCOMYCIN
     Dosage: UNK
  7. ALBUREX [Suspect]
     Active Substance: ALBUMIN HUMAN
     Dosage: UNK
  8. AMBISOME [Suspect]
     Active Substance: AMPHOTERICIN B
     Dosage: UNK
  9. OMEPRAZOLE [Suspect]
     Active Substance: OMEPRAZOLE
     Dosage: UNK
  10. ZOVIRAX [Suspect]
     Active Substance: ACYCLOVIR
     Dosage: UNK
  11. SULFAMETHOXAZOLE\TRIMETHOPRIM [Suspect]
     Active Substance: SULFAMETHOXAZOLE\TRIMETHOPRIM
     Dosage: UNK
  12. SODIUM PHOSPHATE [Suspect]
     Active Substance: SODIUM PHOSPHATE
     Dosage: UNK
  13. POLYETHYLENE GLYCOL 4000 [Suspect]
     Active Substance: POLYETHYLENE GLYCOL 4000
     Dosage: UNK
  14. MORPHINE [Suspect]
     Active Substance: MORPHINE
     Dosage: UNK
  15. ACETAMINOPHEN [Suspect]
     Active Substance: ACETAMINOPHEN
     Dosage: UNK

REACTIONS (7)
  - Chest pain [Recovered/Resolved]
  - Nervous system disorder [Recovered/Resolved]
  - Hypoxia [Recovered/Resolved]
  - Bronchospasm [Recovered/Resolved]
  - Joint stiffness [Recovered/Resolved]
  - Loss of consciousness [Recovered/Resolved]
  - Off label use [Unknown]

NARRATIVE: CASE EVENT DATE: 20210606
